FAERS Safety Report 21583218 (Version 1)
Quarter: 2022Q4

REPORT INFORMATION
  Report Type: Spontaneous
  Country: US (occurrence: US)
  Receive Date: 20221111
  Receipt Date: 20221111
  Transmission Date: 20230113
  Serious: Yes (Death, Other)
  Sender: FDA-Public Use
  Company Number: US-SA-SAC20221111000552

PATIENT
  Age: 71 Year
  Sex: Male

DRUGS (1)
  1. ZANTAC [Suspect]
     Active Substance: RANITIDINE HYDROCHLORIDE
     Dosage: UNK UNK, QD
     Dates: start: 199501, end: 202001

REACTIONS (1)
  - Hepatic cancer stage III [Fatal]

NARRATIVE: CASE EVENT DATE: 20200604
